FAERS Safety Report 23341585 (Version 1)
Quarter: 2023Q4

REPORT INFORMATION
  Report Type: Spontaneous
  Country: GB (occurrence: GB)
  Receive Date: 20231227
  Receipt Date: 20231227
  Transmission Date: 20240109
  Serious: Yes (Disabling)
  Sender: FDA-Public Use
  Company Number: None

PATIENT

DRUGS (1)
  1. ATORVASTATIN [Suspect]
     Active Substance: ATORVASTATIN
     Indication: Cardiovascular event prophylaxis
     Dosage: 20 MG
     Route: 065
     Dates: start: 20230604, end: 20230901

REACTIONS (1)
  - Tendonitis [Recovering/Resolving]

NARRATIVE: CASE EVENT DATE: 20230604
